FAERS Safety Report 10409764 (Version 2)
Quarter: 2014Q3

REPORT INFORMATION
  Report Type: Spontaneous
  Country: US (occurrence: None)
  Receive Date: 20140822
  Receipt Date: 20140908
  Transmission Date: 20150326
  Serious: Yes (Other)
  Sender: FDA-Public Use
  Company Number: 2014-US-010189

PATIENT
  Age: 43 Year
  Sex: Male

DRUGS (1)
  1. XYREM [Suspect]
     Active Substance: SODIUM OXYBATE
     Indication: SLEEP DISORDER
     Route: 048
     Dates: start: 200510, end: 2005

REACTIONS (5)
  - Intentional product misuse [None]
  - Drug dose omission [None]
  - Glucose tolerance impaired [None]
  - Off label use [None]
  - Metabolic syndrome [None]
